FAERS Safety Report 9485625 (Version 5)
Quarter: 2013Q4

REPORT INFORMATION
  Report Type: Spontaneous
  Country: US (occurrence: US)
  Receive Date: 20130829
  Receipt Date: 20131020
  Transmission Date: 20140711
  Serious: Yes (Other)
  Sender: FDA-Public Use
  Company Number: US-009507513-1308USA013379

PATIENT
  Age: 20 Year
  Sex: Female
  Weight: 60.77 kg

DRUGS (2)
  1. NEXPLANON [Suspect]
     Indication: CONTRACEPTION
     Dosage: 68MG ONE ROD EVERY THREE YEAR
     Route: 059
     Dates: start: 20130807, end: 20130822
  2. IMPLANON [Concomitant]
     Dosage: UNK
     Route: 059
     Dates: end: 20130807

REACTIONS (8)
  - Joint range of motion decreased [Recovering/Resolving]
  - Feeling abnormal [Recovering/Resolving]
  - Pain in extremity [Not Recovered/Not Resolved]
  - Device dislocation [Recovered/Resolved]
  - Device difficult to use [Recovered/Resolved]
  - Contusion [Recovering/Resolving]
  - Pain [Recovering/Resolving]
  - Application site discomfort [Recovering/Resolving]
